FAERS Safety Report 10020900 (Version 1)
Quarter: 2014Q1

REPORT INFORMATION
  Report Type: Spontaneous
  Country: US (occurrence: None)
  Receive Date: 20140318
  Receipt Date: 20140318
  Transmission Date: 20141002
  Serious: No
  Sender: FDA-Public Use
  Company Number: None

PATIENT
  Sex: 0

DRUGS (1)
  1. NEXIUM [Suspect]

REACTIONS (3)
  - Myositis [None]
  - Product contamination [None]
  - Product quality issue [None]
